FAERS Safety Report 22146609 (Version 3)
Quarter: 2023Q2

REPORT INFORMATION
  Report Type: Spontaneous
  Country: CA (occurrence: CA)
  Receive Date: 20230328
  Receipt Date: 20230411
  Transmission Date: 20230721
  Serious: Yes (Other)
  Sender: FDA-Public Use
  Company Number: CA-PFIZER INC-202300073801

PATIENT
  Age: 62 Year
  Sex: Female

DRUGS (13)
  1. METHOTREXATE SODIUM [Suspect]
     Active Substance: METHOTREXATE SODIUM
     Indication: Rheumatoid arthritis
     Dosage: 1 DF, UNKNOWN DOSE
     Route: 048
  2. METHOTREXATE SODIUM [Suspect]
     Active Substance: METHOTREXATE SODIUM
     Dosage: 1 DF, UNKNOWN DOSE
     Route: 065
     Dates: start: 2016
  3. METHOTREXATE SODIUM [Suspect]
     Active Substance: METHOTREXATE SODIUM
     Dosage: 20 MG, DISCONTINUED
     Route: 065
     Dates: start: 2017, end: 2022
  4. PERINDOPRIL ARGININE [Concomitant]
     Active Substance: PERINDOPRIL ARGININE
     Dosage: 1 DF, UNKNOWN DOSE
     Route: 065
  5. ENBREL [Concomitant]
     Active Substance: ETANERCEPT
     Dosage: 1 DF, UNKNOWN DOSE
     Route: 058
  6. HUMIRA [Concomitant]
     Active Substance: ADALIMUMAB
     Dosage: UNK
     Route: 058
  7. LEFLUNOMIDE [Concomitant]
     Active Substance: LEFLUNOMIDE
     Dosage: UNK
  8. ORENCIA [Concomitant]
     Active Substance: ABATACEPT
     Dosage: 1 DF, UNKNOWN DOSE
     Route: 065
  9. PERINDOPRIL [Concomitant]
     Active Substance: PERINDOPRIL
     Dosage: 1 DF, UNKNOWN DOSE
     Route: 065
  10. PREDNISONE [Concomitant]
     Active Substance: PREDNISONE
     Dosage: 1 DF, UNKNOWN DOSE
     Route: 065
  11. PREDNISONE [Concomitant]
     Active Substance: PREDNISONE
     Dosage: 7.5 MG, 1X/DAY (PO OD), NEXT WEEK WILL BE DOWN TO 5MG
     Route: 048
  12. HYDROXYCHLOROQUINE DIPHOSPHATE [Concomitant]
     Active Substance: HYDROXYCHLOROQUINE DIPHOSPHATE
     Dosage: UNK
  13. SULFASALAZINE [Concomitant]
     Active Substance: SULFASALAZINE
     Dosage: 2000 MG, DAILY
     Route: 048

REACTIONS (6)
  - Liver injury [Unknown]
  - Hepatic cirrhosis [Not Recovered/Not Resolved]
  - Portal hypertension [Recovering/Resolving]
  - Hepatic fibrosis [Unknown]
  - Hepatic enzyme increased [Unknown]
  - Platelet count decreased [Unknown]
